FAERS Safety Report 11707561 (Version 2)
Quarter: 2016Q2

REPORT INFORMATION
  Report Type: Spontaneous
  Country: CZ (occurrence: CZ)
  Receive Date: 20151106
  Receipt Date: 20160622
  Transmission Date: 20160815
  Serious: Yes (Hospitalization)
  Sender: FDA-Public Use
  Company Number: CZ-ASTRAZENECA-2015SF07325

PATIENT
  Age: 52 Year
  Sex: Female
  Weight: 148 kg

DRUGS (19)
  1. GLYCERIN. [Suspect]
     Active Substance: GLYCERIN
     Route: 054
  2. CLOMIPRAMINE HYDROCHLORIDE. [Suspect]
     Active Substance: CLOMIPRAMINE HYDROCHLORIDE
     Route: 065
  3. QUETIAPINE. [Suspect]
     Active Substance: QUETIAPINE
     Route: 048
  4. SUMATRIPTAN SUCCINATE. [Suspect]
     Active Substance: SUMATRIPTAN SUCCINATE
     Route: 065
  5. HALOPERIDOL. [Suspect]
     Active Substance: HALOPERIDOL
     Route: 065
  6. FELODIPINE. [Suspect]
     Active Substance: FELODIPINE
     Route: 048
  7. OMEPRAZOLE. [Suspect]
     Active Substance: OMEPRAZOLE
     Route: 048
  8. CODEINE PHOSPHATE/PARACETAMOL [Suspect]
     Active Substance: ACETAMINOPHEN\CODEINE PHOSPHATE
     Route: 065
  9. RAMIPRIL. [Suspect]
     Active Substance: RAMIPRIL
     Route: 048
  10. CLONAZEPAM. [Suspect]
     Active Substance: CLONAZEPAM
     Route: 065
  11. LITHIUM CARBONATE. [Suspect]
     Active Substance: LITHIUM CARBONATE
     Route: 065
  12. METAMIZOLE SODIUM/PITOFENONE HYDROCHLORIDE [Suspect]
     Active Substance: METAMIZOLE SODIUM\PITOFENONE HYDROCHLORIDE
     Route: 065
  13. FLUVOXAMINE [Suspect]
     Active Substance: FLUVOXAMINE
     Route: 065
  14. DICLOFENAC [Suspect]
     Active Substance: DICLOFENAC
     Route: 065
  15. OXAZEPAM. [Suspect]
     Active Substance: OXAZEPAM
     Route: 065
  16. URAPIDIL [Suspect]
     Active Substance: URAPIDIL
     Route: 065
  17. IBUPROFEN. [Suspect]
     Active Substance: IBUPROFEN
     Route: 065
  18. GUAIFENESIN. [Suspect]
     Active Substance: GUAIFENESIN
     Route: 065
  19. SAFAPRYN [Suspect]
     Active Substance: ACETAMINOPHEN\ASPIRIN
     Route: 065

REACTIONS (5)
  - Toxicity to various agents [Recovered/Resolved]
  - Altered state of consciousness [Recovered/Resolved]
  - Acute kidney injury [Recovered/Resolved]
  - Thirst [Recovered/Resolved]
  - Drug level increased [Recovered/Resolved]
